FAERS Safety Report 6722389-0 (Version None)
Quarter: 2010Q2

REPORT INFORMATION
  Report Type: 
  Country: None (occurrence: None)
  Receive Date: 20100512
  Receipt Date: 20100430
  Transmission Date: 20101027
  Serious: Yes (Other)
  Sender: FDA-Public Use
  Company Number: BR-PFIZER INC-2010055238

PATIENT
  Age: 57 Year
  Sex: Female
  Weight: 49 kg

DRUGS (2)
  1. CHAMPIX [Suspect]
     Indication: SMOKING CESSATION THERAPY
     Dosage: UNK
     Route: 048
     Dates: start: 20100213
  2. CHAMPIX [Suspect]
     Dosage: 1 MG, 1X/DAY (EVERY 24 HOURS)
     Route: 048
     Dates: start: 20100401

REACTIONS (7)
  - DYSPEPSIA [None]
  - EPISTAXIS [None]
  - GASTRITIS [None]
  - GINGIVAL BLEEDING [None]
  - GLOSSITIS [None]
  - HEADACHE [None]
  - STOMATITIS [None]
